FAERS Safety Report 6654916-6 (Version None)
Quarter: 2010Q1

REPORT INFORMATION
  Report Type: 
  Country: None (occurrence: None)
  Receive Date: 20100329
  Receipt Date: 20100318
  Transmission Date: 20100710
  Serious: No
  Sender: FDA-Public Use
  Company Number: US-BIOGENIDEC-2010BI009774

PATIENT
  Age: 49 Year
  Sex: Female

DRUGS (1)
  1. TYSABRI [Suspect]
     Indication: MULTIPLE SCLEROSIS
     Route: 042
     Dates: start: 20090824

REACTIONS (13)
  - ABDOMINAL PAIN UPPER [None]
  - APHAGIA [None]
  - COORDINATION ABNORMAL [None]
  - DEHYDRATION [None]
  - DYSPNOEA [None]
  - DYSSTASIA [None]
  - GLOSSODYNIA [None]
  - HEADACHE [None]
  - NAUSEA [None]
  - NECK PAIN [None]
  - PALPITATIONS [None]
  - SKIN DISCOLOURATION [None]
  - TREMOR [None]
